FAERS Safety Report 7346905-3 (Version None)
Quarter: 2011Q1

REPORT INFORMATION
  Report Type: 
  Country: None (occurrence: None)
  Receive Date: 20110311
  Receipt Date: 20110301
  Transmission Date: 20110831
  Serious: Yes (Other)
  Sender: FDA-Public Use
  Company Number: US-ALLERGAN-1102974US

PATIENT
  Age: 60 Year
  Sex: Female

DRUGS (3)
  1. BOTOXA? [Suspect]
     Indication: BLEPHAROSPASM
     Dosage: 300 UNITS, SINGLE
     Route: 030
     Dates: start: 20110101, end: 20110101
  2. MORPHINE [Concomitant]
     Indication: PRODUCT USED FOR UNKNOWN INDICATION
     Dosage: 30 MG, TID
  3. OXYCONTIN [Concomitant]
     Indication: PRODUCT USED FOR UNKNOWN INDICATION
     Dosage: 40 MG, TID

REACTIONS (11)
  - PHARYNGEAL DISORDER [None]
  - MONOCLONAL GAMMOPATHY [None]
  - OESOPHAGEAL DISORDER [None]
  - GASTRIC DISORDER [None]
  - INSOMNIA [None]
  - MUSCULAR WEAKNESS [None]
  - LOSS OF CONSCIOUSNESS [None]
  - CONVULSION [None]
  - EXOSTOSIS [None]
  - MUSCULOSKELETAL PAIN [None]
  - DYSPHAGIA [None]
